FAERS Safety Report 5836181-2 (Version None)
Quarter: 2008Q3

REPORT INFORMATION
  Report Type: 
  Country: None (occurrence: None)
  Receive Date: 20080805
  Receipt Date: 20080722
  Transmission Date: 20090109
  Serious: Yes (Hospitalization)
  Sender: FDA-Public Use
  Company Number: 236990J08USA

PATIENT
  Age: 50 Year
  Sex: Female
  Weight: 49.8957 kg

DRUGS (4)
  1. REBIF [Suspect]
     Indication: MULTIPLE SCLEROSIS
     Dosage: 44 MCG, 3 IN 1 WEEKS, SUBCUTANEOUS
     Route: 058
     Dates: start: 20050623
  2. XANAX [Concomitant]
  3. ADVIL [Concomitant]
  4. AMITRIPTYLINE HCL [Concomitant]

REACTIONS (13)
  - BLINDNESS UNILATERAL [None]
  - CONDITION AGGRAVATED [None]
  - DYSPEPSIA [None]
  - EYE INFECTION STAPHYLOCOCCAL [None]
  - HYPERTENSION [None]
  - ILL-DEFINED DISORDER [None]
  - NAUSEA [None]
  - OCULAR HYPERAEMIA [None]
  - PAIN [None]
  - PAIN IN EXTREMITY [None]
  - PARAESTHESIA [None]
  - PYREXIA [None]
  - TREATMENT NONCOMPLIANCE [None]
